FAERS Safety Report 26107980 (Version 1)
Quarter: 2025Q4

REPORT INFORMATION
  Report Type: Report from Study
  Country: JP (occurrence: JP)
  Receive Date: 20251201
  Receipt Date: 20251201
  Transmission Date: 20260117
  Serious: Yes (Other)
  Sender: PFIZER
  Company Number: JP-PFIZER INC-PV202500138599

PATIENT

DRUGS (3)
  1. BEVACIZUMAB [Suspect]
     Active Substance: BEVACIZUMAB
     Indication: Colorectal cancer stage IV
     Dosage: 5 MG/KG, CYCLIC (ON DAYS 1 AND 15)
     Route: 042
     Dates: start: 201901
  2. UFT [Suspect]
     Active Substance: TEGAFUR\URACIL
     Indication: Colorectal cancer stage IV
     Dosage: UNK, CYCLIC
     Route: 048
     Dates: start: 201901
  3. LEUCOVORIN CALCIUM [Suspect]
     Active Substance: LEUCOVORIN CALCIUM
     Indication: Colorectal cancer stage IV
     Dosage: UNK, CYCLIC
     Route: 048
     Dates: start: 201901

REACTIONS (1)
  - Cholecystitis [Unknown]
